FAERS Safety Report 23492660 (Version 1)
Quarter: 2024Q1

REPORT INFORMATION
  Report Type: Spontaneous
  Country: US (occurrence: US)
  Receive Date: 20240207
  Receipt Date: 20240207
  Transmission Date: 20240410
  Serious: Yes (Hospitalization)
  Sender: FDA-Public Use
  Company Number: US-ROCHE-3499624

PATIENT
  Age: 59 Year
  Sex: Female

DRUGS (3)
  1. CAPECITABINE [Suspect]
     Active Substance: CAPECITABINE
     Indication: Product used for unknown indication
     Route: 048
  2. HERCEPTIN [Suspect]
     Active Substance: TRASTUZUMAB
     Indication: Product used for unknown indication
  3. TUKYSA [Suspect]
     Active Substance: TUCATINIB
     Indication: Breast cancer female

REACTIONS (19)
  - Diarrhoea [Unknown]
  - Vomiting [Unknown]
  - Blood potassium decreased [Unknown]
  - Blood magnesium decreased [Unknown]
  - Red blood cell count decreased [Unknown]
  - Nail disorder [Unknown]
  - Fall [Unknown]
  - Depressed mood [Unknown]
  - Skin exfoliation [Unknown]
  - Dysstasia [Unknown]
  - Pain [Unknown]
  - Blister [Unknown]
  - Fungal foot infection [Unknown]
  - Fatigue [Unknown]
  - Weight decreased [Unknown]
  - Pain in extremity [Unknown]
  - Skin discolouration [Unknown]
  - Dry skin [Unknown]
  - Skin fissures [Unknown]

NARRATIVE: CASE EVENT DATE: 20240105
